FAERS Safety Report 23662965 (Version 1)
Quarter: 2024Q1

REPORT INFORMATION
  Report Type: Spontaneous
  Country: CN (occurrence: CN)
  Receive Date: 20240322
  Receipt Date: 20240322
  Transmission Date: 20240410
  Serious: Yes (Hospitalization)
  Sender: FDA-Public Use
  Company Number: CN-002147023-NVSC2024CN061566

PATIENT
  Age: 69 Year
  Sex: Female
  Weight: 53 kg

DRUGS (2)
  1. SACUBITRIL\VALSARTAN [Suspect]
     Active Substance: SACUBITRIL\VALSARTAN
     Indication: Blood pressure increased
     Dosage: 1 DOSAGE FORM, BID (1 TABLET)
     Route: 048
     Dates: start: 20240316, end: 20240316
  2. METOPROLOL TARTRATE [Concomitant]
     Active Substance: METOPROLOL TARTRATE
     Indication: Heart rate increased
     Dosage: 1 DOSAGE FORM, BID (1 TABLET)
     Route: 048
     Dates: start: 20240311, end: 20240317

REACTIONS (7)
  - Palpitations [Recovering/Resolving]
  - Dyspnoea [Recovering/Resolving]
  - Tremor [Recovering/Resolving]
  - Heart rate increased [Recovering/Resolving]
  - Hyperhidrosis [Recovering/Resolving]
  - Dizziness [Recovering/Resolving]
  - Vomiting [Recovering/Resolving]

NARRATIVE: CASE EVENT DATE: 20240316
